FAERS Safety Report 10171137 (Version 1)
Quarter: 2014Q2

REPORT INFORMATION
  Report Type: Spontaneous
  Country: US (occurrence: None)
  Receive Date: 20140501
  Receipt Date: 20140501
  Transmission Date: 20141212
  Serious: No
  Sender: FDA-Public Use
  Company Number: PHEH2014US006225

PATIENT
  Age: 68 Year
  Sex: Female

DRUGS (2)
  1. ARCAPTA [Suspect]
     Route: 055
     Dates: start: 20140325
  2. FLONASE (FLUTICASONE PROPIONATE) [Concomitant]

REACTIONS (2)
  - Rash [None]
  - Expired product administered [None]
